FAERS Safety Report 26172149 (Version 1)
Quarter: 2025Q4

REPORT INFORMATION
  Report Type: Spontaneous
  Country: US (occurrence: US)
  Receive Date: 20251218
  Receipt Date: 20251218
  Transmission Date: 20260117
  Serious: Yes (Death, Other)
  Sender: Agepha Pharmaceuticals
  Company Number: US-AGEPHA PHARMA FZ LLC-AGP202512-000106

PATIENT
  Age: 83 Year
  Sex: Male

DRUGS (2)
  1. COLCHICINE [Suspect]
     Active Substance: COLCHICINE
     Indication: Pericardial effusion
     Dosage: UNK
     Route: 065
  2. METFORMIN [Suspect]
     Active Substance: METFORMIN HYDROCHLORIDE
     Indication: Diabetes prophylaxis
     Dosage: UNK
     Route: 065

REACTIONS (6)
  - Drug interaction [Fatal]
  - Toxicity to various agents [Fatal]
  - Multiple organ dysfunction syndrome [Fatal]
  - Hypotension [Unknown]
  - Mental status changes [Unknown]
  - Product use in unapproved indication [Unknown]
